FAERS Safety Report 5580458-5 (Version None)
Quarter: 2008Q1

REPORT INFORMATION
  Report Type: 
  Country: None (occurrence: None)
  Receive Date: 20080103
  Receipt Date: 20071224
  Transmission Date: 20080703
  Serious: Yes (Death)
  Sender: FDA-Public Use
  Company Number: TR-ELI_LILLY_AND_COMPANY-TR200712004657

PATIENT
  Sex: Female

DRUGS (2)
  1. HUMALOG MIX 75/25 [Suspect]
     Dosage: 22 U, EACH MORNING
     Route: 058
     Dates: start: 20070701
  2. HUMALOG MIX 75/25 [Suspect]
     Dosage: 30 U, EACH EVENING
     Route: 058
     Dates: start: 20070701

REACTIONS (1)
  - CARDIAC FAILURE [None]
